FAERS Safety Report 8604383-8 (Version None)
Quarter: 2012Q3

REPORT INFORMATION
  Report Type: 
  Country: None (occurrence: None)
  Receive Date: 20120820
  Receipt Date: 20120808
  Transmission Date: 20120928
  Serious: Yes (Hospitalization, Other)
  Sender: FDA-Public Use
  Company Number: US-BAYER-2012-035450

PATIENT
  Age: 40 Year
  Sex: Female
  Weight: 69.841 kg

DRUGS (15)
  1. YAZ [Suspect]
     Indication: OVARIAN CYST
  2. MOTRIN [Concomitant]
  3. YASMIN [Suspect]
  4. MORPHINE [Concomitant]
     Indication: PAIN
  5. MUCINEX [Concomitant]
     Dosage: UNK
     Route: 048
     Dates: start: 20060719
  6. YAZ [Suspect]
     Indication: MENSTRUATION IRREGULAR
     Dosage: UNK
     Dates: start: 20060526, end: 20060719
  7. FLEXERIL [Concomitant]
     Indication: MUSCLE SPASMS
     Dosage: 10 MG, HS
     Route: 048
     Dates: start: 20060719
  8. ACETAMINOPHEN W/ CODEINE [Concomitant]
     Indication: PAIN
     Dosage: ONE Q4 -Q6 HRS
     Route: 048
     Dates: start: 20060719
  9. DARVOCET [Concomitant]
  10. CYCLOBENZAPRINE [Concomitant]
  11. ALBUTEROL [Concomitant]
     Dosage: INHALE 2 PUFF(S), Q4 -Q 6 HRS PRN
     Dates: start: 20060719
  12. IBUPROFEN [Concomitant]
     Dosage: 800 MG, TID
     Route: 048
     Dates: start: 20060723
  13. YAZ [Suspect]
     Indication: DYSMENORRHOEA
  14. MUCINEX [Concomitant]
  15. PROPOXYPHENE NAPSYLATE W/ ACETAMINOPHEN [Concomitant]
     Indication: PAIN
     Dosage: 1 TAB Q 4 -Q 6 HRS. PRN
     Route: 048
     Dates: start: 20060723

REACTIONS (14)
  - EMOTIONAL DISTRESS [None]
  - PALLOR [None]
  - OVARIAN CYST RUPTURED [None]
  - BACK PAIN [None]
  - DYSPNOEA [None]
  - FEAR [None]
  - PAIN [None]
  - ANXIETY [None]
  - PULMONARY EMBOLISM [None]
  - NERVOUSNESS [None]
  - PNEUMONIA [None]
  - INJURY [None]
  - CHEST PAIN [None]
  - GENERAL PHYSICAL HEALTH DETERIORATION [None]
